FAERS Safety Report 7659676 (Version 8)
Quarter: 2013Q1

REPORT INFORMATION
  Report Type: Spontaneous
  Country: US (occurrence: US)
  Receive Date: 20101108
  Receipt Date: 20130215
  Transmission Date: 20140127
  Serious: Yes (Death, Hospitalization, Other)
  Sender: FDA-Public Use
  Company Number: PHHY2010US74228

PATIENT
  Age: 31 Year
  Sex: Male

DRUGS (11)
  1. SANDIMMUNE [Suspect]
     Indication: RENAL TRANSPLANT
     Dates: start: 1986, end: 1989
  2. NEORAL [Suspect]
     Indication: RENAL TRANSPLANT
     Dates: start: 1989, end: 2008
  3. RAPAMUNE [Suspect]
     Dosage: 1 MG 4X1DAY
     Dates: start: 2008
  4. RAPAMUNE [Suspect]
     Dosage: 1 MG 2X1DAY
     Dates: start: 2008
  5. PREDNISONE [Concomitant]
  6. TEGRETOL [Concomitant]
  7. RISPERIDONE [Concomitant]
  8. LABETALOL [Concomitant]
  9. GABAPENTIN [Concomitant]
  10. VALCYTE [Concomitant]
  11. NIFEDIPINE [Concomitant]

REACTIONS (7)
  - Death [Fatal]
  - Lymphoma [Unknown]
  - Lymphadenopathy [Unknown]
  - Lymphoproliferative disorder [Unknown]
  - Epstein-Barr virus infection [Unknown]
  - Hypertension [Unknown]
  - Convulsion [Unknown]
